FAERS Safety Report 10728320 (Version 2)
Quarter: 2015Q2

REPORT INFORMATION
  Report Type: Spontaneous
  Country: FR (occurrence: FR)
  Receive Date: 20150121
  Receipt Date: 20150416
  Transmission Date: 20150821
  Serious: Yes (Life-Threatening, Hospitalization)
  Sender: FDA-Public Use
  Company Number: FR-ROCHE-1523944

PATIENT
  Age: 63 Year
  Sex: Female

DRUGS (10)
  1. PLAVIX [Concomitant]
     Active Substance: CLOPIDOGREL BISULFATE
  2. LIPANTHYL [Concomitant]
     Active Substance: FENOFIBRATE
  3. CYNOMEL [Concomitant]
  4. MABTHERA [Suspect]
     Active Substance: RITUXIMAB
     Indication: LYMPHOMA
     Route: 041
     Dates: start: 201409, end: 20141124
  5. CYCLOPHOSPHAMIDE. [Concomitant]
     Active Substance: CYCLOPHOSPHAMIDE
     Route: 065
     Dates: start: 201409
  6. LEVOTHYROX [Concomitant]
     Active Substance: LEVOTHYROXINE
  7. PREDNISOLONE. [Concomitant]
     Active Substance: PREDNISOLONE
     Route: 065
     Dates: start: 201409
  8. ONCOVIN [Concomitant]
     Active Substance: VINCRISTINE SULFATE
     Route: 065
     Dates: start: 201409
  9. METFORMINE [Concomitant]
     Active Substance: METFORMIN HYDROCHLORIDE
  10. HYDROXYDAUNORUBICIN [Concomitant]
     Active Substance: DOXORUBICIN
     Route: 065
     Dates: start: 201409

REACTIONS (1)
  - Erythrodermic psoriasis [Unknown]

NARRATIVE: CASE EVENT DATE: 20141124
